FAERS Safety Report 12725154 (Version 1)
Quarter: 2016Q3

REPORT INFORMATION
  Report Type: Spontaneous
  Country: US (occurrence: US)
  Receive Date: 20160905
  Receipt Date: 20160905
  Transmission Date: 20161109
  Serious: Yes (Other)
  Sender: FDA-Public Use
  Company Number: None

PATIENT
  Age: 69 Year
  Sex: Female
  Weight: 59.4 kg

DRUGS (6)
  1. LIPITOR [Suspect]
     Active Substance: ATORVASTATIN CALCIUM
     Indication: BLOOD CHOLESTEROL INCREASED
     Route: 048
     Dates: start: 20100304, end: 20130514
  2. HRT [Concomitant]
     Active Substance: UNSPECIFIED INGREDIENT
  3. VITAMIN D [Concomitant]
     Active Substance: CHOLECALCIFEROL
  4. LOSARTAN. [Concomitant]
     Active Substance: LOSARTAN
  5. SIMVASTATIN ACCORD HEA [Suspect]
     Active Substance: SIMVASTATIN
     Indication: BLOOD CHOLESTEROL INCREASED
     Route: 048
     Dates: start: 20150107, end: 20160518
  6. FISH OIL [Concomitant]
     Active Substance: FISH OIL

REACTIONS (7)
  - Cough [None]
  - Fatigue [None]
  - Blood glucose abnormal [None]
  - Rash [None]
  - Hypertension [None]
  - Nephrolithiasis [None]
  - Activities of daily living impaired [None]

NARRATIVE: CASE EVENT DATE: 20130909
